FAERS Safety Report 10368423 (Version 2)
Quarter: 2014Q3

REPORT INFORMATION
  Report Type: Spontaneous
  Country: CA (occurrence: CA)
  Receive Date: 20140807
  Receipt Date: 20140822
  Transmission Date: 20150326
  Serious: Yes (Death, Other)
  Sender: FDA-Public Use
  Company Number: PHHY2014CA096457

PATIENT
  Sex: Female

DRUGS (6)
  1. TOPIRAMATE. [Suspect]
     Active Substance: TOPIRAMATE
     Indication: INFANTILE SPASMS
  2. CARBAMAZEPINE. [Suspect]
     Active Substance: CARBAMAZEPINE
     Indication: INFANTILE SPASMS
  3. VIGABATRIN [Suspect]
     Active Substance: VIGABATRIN
     Indication: INFANTILE SPASMS
  4. ACTH [Suspect]
     Active Substance: CORTICOTROPIN
  5. MIDAZOLAM [Suspect]
     Active Substance: MIDAZOLAM\MIDAZOLAM HYDROCHLORIDE
     Indication: INFANTILE SPASMS
  6. CLOBAZAM [Suspect]
     Active Substance: CLOBAZAM
     Indication: INFANTILE SPASMS

REACTIONS (4)
  - Therapeutic response decreased [Unknown]
  - Death [Fatal]
  - Amino acid level increased [Unknown]
  - Partial seizures [Unknown]
